FAERS Safety Report 17733506 (Version 1)
Quarter: 2020Q2

REPORT INFORMATION
  Report Type: Spontaneous
  Country: US (occurrence: US)
  Receive Date: 20200430
  Receipt Date: 20200430
  Transmission Date: 20200714
  Serious: Yes (Hospitalization)
  Sender: FDA-Public Use
  Company Number: None

PATIENT
  Age: 46 Year
  Sex: Male
  Weight: 92 kg

DRUGS (2)
  1. DESFLURANE (DESFLURANE SOLN, INHL) [Suspect]
     Active Substance: DESFLURANE
     Indication: ANAESTHESIA
     Dates: start: 20200212, end: 20200212
  2. SUCCINYLCHOLINE (SUCCINYLCHOLINE CHLORIDE 1000MG/VIL INJ) [Suspect]
     Active Substance: SUCCINYLCHOLINE CHLORIDE
     Indication: ANAESTHESIA
     Dates: start: 20200212, end: 20200212

REACTIONS (3)
  - Procedural complication [None]
  - Anaesthetic complication [None]
  - Hyperthermia malignant [None]

NARRATIVE: CASE EVENT DATE: 20200212
